FAERS Safety Report 5474162-1 (Version None)
Quarter: 2007Q3

REPORT INFORMATION
  Report Type: 
  Country: None (occurrence: None)
  Receive Date: 20070830
  Receipt Date: 20070327
  Transmission Date: 20080115
  Serious: Yes (Other)
  Sender: FDA-Public Use
  Company Number: 236463

PATIENT
  Age: 62 Year
  Sex: Female
  Weight: 88.4 kg

DRUGS (16)
  1. XOLAIR [Suspect]
     Indication: ASTHMA
     Dosage: 375 MG, 1/MONTH, SUBCUTANEOUS
     Route: 058
     Dates: start: 20050720
  2. ADVAIR DISKUS 100/50 [Concomitant]
  3. ALBUTEROL (ALBUTEROL/ALBUTEROL SULFATE) [Concomitant]
  4. POTASSIUM (POTASSIUM NOS) [Concomitant]
  5. PROTONIX [Concomitant]
  6. AMBIEN [Concomitant]
  7. REQUIP [Concomitant]
  8. KLONOPIN [Concomitant]
  9. ZOLOFT [Concomitant]
  10. THEOPHYLLINE [Concomitant]
  11. SINGULAIR [Concomitant]
  12. AVAPRO [Concomitant]
  13. SPIRIVA [Concomitant]
  14. IROM (IRON NOS) [Concomitant]
  15. HYDROCHLOROTHIAZIDE [Concomitant]
  16. PREDNISONE [Concomitant]

REACTIONS (3)
  - ANAEMIA [None]
  - GASTRIC POLYPS [None]
  - RENAL CELL CARCINOMA STAGE UNSPECIFIED [None]
